FAERS Safety Report 4302343-9 (Version None)
Quarter: 2004Q1

REPORT INFORMATION
  Report Type: 
  Country: None (occurrence: None)
  Receive Date: 20040126
  Receipt Date: 20031010
  Transmission Date: 20041129
  Serious: No
  Sender: FDA-Public Use
  Company Number: USA031049580

PATIENT
  Age: 13 Year
  Sex: Female
  Weight: 51 kg

DRUGS (1)
  1. STRATTERA [Suspect]
     Dosage: 60 MG/IN THE MORNING
     Dates: start: 20031006

REACTIONS (4)
  - ABDOMINAL PAIN UPPER [None]
  - DIZZINESS [None]
  - HOT FLUSH [None]
  - SOMNOLENCE [None]
